FAERS Safety Report 7537019-8 (Version None)
Quarter: 2011Q2

REPORT INFORMATION
  Report Type: 
  Country: None (occurrence: None)
  Receive Date: 20110609
  Receipt Date: 20110526
  Transmission Date: 20111010
  Serious: Yes (Other)
  Sender: FDA-Public Use
  Company Number: PHHY2011US46346

PATIENT
  Sex: Female

DRUGS (5)
  1. AZELASTINE HCL [Suspect]
  2. FLUTICASONE PROPIONATE [Suspect]
     Indication: SINUS DISORDER
  3. NASONEX [Suspect]
  4. LISINOPRIL AND HYDROCHLOROTHIAZIDE [Suspect]
     Dosage: 20 MG LISI AND 12.5 MG HYDR, 1 DF DAILY
  5. DIOVAN [Suspect]
     Dosage: 160 MG, QD

REACTIONS (4)
  - ALOPECIA [None]
  - ABDOMINAL DISCOMFORT [None]
  - ARTERIOSCLEROSIS [None]
  - CARDIAC MURMUR [None]
